FAERS Safety Report 6617846-1 (Version None)
Quarter: 2010Q1

REPORT INFORMATION
  Report Type: 
  Country: None (occurrence: None)
  Receive Date: 20100308
  Receipt Date: 20100304
  Transmission Date: 20100710
  Serious: Yes (Death, Hospitalization)
  Sender: FDA-Public Use
  Company Number: PHHY2010AU06011

PATIENT
  Sex: Female
  Weight: 50 kg

DRUGS (6)
  1. ACLASTA [Suspect]
     Dosage: UNK
     Route: 042
     Dates: start: 20100114
  2. METHOTREXATE [Concomitant]
     Dosage: 15 MG WEEKLY
     Route: 048
     Dates: start: 20040707
  3. NAPROXEN [Concomitant]
     Dosage: 500 MG, BID
     Route: 048
  4. ZOTON [Concomitant]
     Dosage: UNK
     Route: 048
     Dates: start: 19940101
  5. OSTELIN [Concomitant]
     Dosage: UNK
     Route: 048
     Dates: start: 20080101
  6. CLONAZEPAM [Concomitant]
     Route: 048

REACTIONS (3)
  - CEREBROVASCULAR ACCIDENT [None]
  - INCORRECT DRUG ADMINISTRATION RATE [None]
  - PNEUMONITIS [None]
